FAERS Safety Report 4408314-6 (Version None)
Quarter: 2004Q3

REPORT INFORMATION
  Report Type: 
  Country: None (occurrence: None)
  Receive Date: 20040726
  Receipt Date: 20040726
  Transmission Date: 20050211
  Serious: Yes (Hospitalization)
  Sender: FDA-Public Use
  Company Number: None

PATIENT
  Age: 54 Year
  Sex: Male
  Weight: 89 kg

DRUGS (1)
  1. COLCHICINE 0.6MG [Suspect]
     Indication: GOUT
     Dosage: 0.6MG Q4H PRN -A ORAL
     Route: 048
     Dates: start: 20040512, end: 20040512

REACTIONS (1)
  - ANGIONEUROTIC OEDEMA [None]
